FAERS Safety Report 20069500 (Version 1)
Quarter: 2021Q4

REPORT INFORMATION
  Report Type: Spontaneous
  Country: RO (occurrence: RO)
  Receive Date: 20211115
  Receipt Date: 20211115
  Transmission Date: 20220304
  Serious: Yes (Other)
  Sender: FDA-Public Use
  Company Number: RO-ASTELLAS-2021US043193

PATIENT
  Age: 70 Year
  Sex: Male

DRUGS (4)
  1. ENZALUTAMIDE [Suspect]
     Active Substance: ENZALUTAMIDE
     Indication: Prostate cancer
     Dosage: 40 MG (CAPSULES), UNKNOWN FREQ.
     Route: 065
     Dates: start: 201911
  2. GOSERELIN [Suspect]
     Active Substance: GOSERELIN
     Indication: Prostate cancer
     Dosage: 10.8 MG, EVERY 12 WEEKS
     Route: 065
     Dates: start: 201510
  3. ZOLEDRONIC ACID [Concomitant]
     Active Substance: ZOLEDRONIC ACID
     Indication: Product used for unknown indication
     Route: 065
     Dates: start: 201911
  4. Ca + d3 [Concomitant]
     Indication: Product used for unknown indication
     Route: 065
     Dates: start: 201911

REACTIONS (8)
  - Malignant neoplasm progression [Unknown]
  - Asthenia [Unknown]
  - Decreased appetite [Unknown]
  - Prostatic specific antigen increased [Unknown]
  - Weight decreased [Unknown]
  - Fall [Unknown]
  - Femur fracture [Unknown]
  - Arthralgia [Unknown]

NARRATIVE: CASE EVENT DATE: 20191201
